FAERS Safety Report 8027294-8 (Version None)
Quarter: 2012Q1

REPORT INFORMATION
  Report Type: 
  Country: None (occurrence: None)
  Receive Date: 20120106
  Receipt Date: 20120102
  Transmission Date: 20120608
  Serious: Yes (Other)
  Sender: FDA-Public Use
  Company Number: BR-PFIZER INC-2012000376

PATIENT
  Age: 59 Year
  Sex: Male
  Weight: 69 kg

DRUGS (3)
  1. VARENICLINE TARTRATE [Suspect]
     Indication: SMOKING CESSATION THERAPY
     Dosage: UNK
     Route: 048
     Dates: start: 20111101, end: 20110101
  2. ALPRAZOLAM [Concomitant]
     Indication: ANXIETY
     Dosage: 1 MG, 1X/DAY AT NIGHT
     Dates: start: 20111104
  3. VARENICLINE TARTRATE [Suspect]
     Dosage: 1 MG, 2X/DAY EVERY 12 HOURS
     Route: 048
     Dates: start: 20110101

REACTIONS (3)
  - HYPERTENSION [None]
  - WEIGHT INCREASED [None]
  - ANXIETY [None]
